FAERS Safety Report 8006015-9 (Version None)
Quarter: 2011Q4

REPORT INFORMATION
  Report Type: 
  Country: None (occurrence: None)
  Receive Date: 20111226
  Receipt Date: 20111215
  Transmission Date: 20120403
  Serious: Yes (Hospitalization, Other)
  Sender: FDA-Public Use
  Company Number: AT-BIOGENIDEC-2010BI041689

PATIENT
  Age: 37 Year
  Sex: Female

DRUGS (8)
  1. TRAZODONE HCL [Concomitant]
     Indication: DEPRESSION
  2. CORTICOSTEROIDS [Concomitant]
  3. MIRTAZAPINE [Concomitant]
     Indication: DEPRESSION
     Dates: start: 20090901
  4. FLUOXETINE HYDROCHLORIDE [Concomitant]
     Indication: DEPRESSION
  5. WELLBUTRIN [Concomitant]
     Indication: DEPRESSION
     Dates: start: 20100901
  6. TYSABRI [Suspect]
     Indication: MULTIPLE SCLEROSIS
     Route: 042
     Dates: start: 20070601, end: 20101101
  7. FLUOXETINE HYDROCHLORIDE [Concomitant]
     Dates: start: 20090901
  8. TRAZODONE HCL [Concomitant]
     Dates: start: 20100901

REACTIONS (7)
  - MULTIPLE SCLEROSIS [None]
  - SEROTONIN SYNDROME [None]
  - PROGRESSIVE MULTIFOCAL LEUKOENCEPHALOPATHY [None]
  - VISUAL IMPAIRMENT [None]
  - DEVICE RELATED SEPSIS [None]
  - HEMIANOPIA HOMONYMOUS [None]
  - IMMUNE RECONSTITUTION SYNDROME [None]
